FAERS Safety Report 9455828 (Version 1)
Quarter: 2013Q3

REPORT INFORMATION
  Report Type: Spontaneous
  Country: US (occurrence: US)
  Receive Date: 20130813
  Receipt Date: 20130813
  Transmission Date: 20140515
  Serious: No
  Sender: FDA-Public Use
  Company Number: US-BRISTOL-MYERS SQUIBB COMPANY-19022284

PATIENT
  Sex: Male

DRUGS (1)
  1. ZERIT [Suspect]
     Indication: HIV INFECTION
     Dosage: ON DRUG THERAPY OVER 17 YRS.

REACTIONS (1)
  - Facial wasting [Unknown]
